FAERS Safety Report 13159982 (Version 1)
Quarter: 2017Q1

REPORT INFORMATION
  Report Type: Report from Study
  Country: US (occurrence: US)
  Receive Date: 20170127
  Receipt Date: 20170127
  Transmission Date: 20170428
  Serious: Yes (Hospitalization, Other)
  Sender: FDA-Public Use
  Company Number: US-ROCHE-1019443

PATIENT
  Age: 57 Year
  Sex: Male
  Weight: 79 kg

DRUGS (10)
  1. BEVACIZUMAB [Suspect]
     Active Substance: BEVACIZUMAB
     Indication: PROSTATE CANCER
     Dosage: 15 MG/KG OVER 30-90 MINUTES ON DAY. RECEIVED 38 COURSES
     Route: 042
     Dates: start: 20091222
  2. LENALIDOMIDE [Suspect]
     Active Substance: LENALIDOMIDE
     Route: 048
     Dates: start: 20100111
  3. BEVACIZUMAB [Suspect]
     Active Substance: BEVACIZUMAB
     Dosage: COURSE 4
     Route: 042
     Dates: start: 20100222
  4. LENALIDOMIDE [Suspect]
     Active Substance: LENALIDOMIDE
     Indication: PROSTATE CANCER
     Dosage: ON DAY 1-14. RECEIVED 38 COURSES
     Route: 048
     Dates: start: 20091222
  5. DOCETAXEL. [Suspect]
     Active Substance: DOCETAXEL
     Indication: PROSTATE CANCER
     Dosage: 75MG/M2 OVER 60 MINUTES ON DAY 1. RECEIVED 38 COURSES
     Route: 042
     Dates: start: 20091222
  6. LENALIDOMIDE [Suspect]
     Active Substance: LENALIDOMIDE
     Dosage: COURSE 4
     Route: 048
     Dates: start: 20100222
  7. PREDNISONE. [Suspect]
     Active Substance: PREDNISONE
     Indication: PROSTATE CANCER
     Dosage: RECEIVED 38 COURSES
     Route: 048
     Dates: start: 20091222
  8. BEVACIZUMAB [Suspect]
     Active Substance: BEVACIZUMAB
     Route: 042
     Dates: start: 20100111
  9. BEVACIZUMAB [Suspect]
     Active Substance: BEVACIZUMAB
     Dosage: COURSE 3
     Route: 042
     Dates: start: 20100201
  10. LENALIDOMIDE [Suspect]
     Active Substance: LENALIDOMIDE
     Dosage: COURSE 3
     Route: 048
     Dates: start: 20100201

REACTIONS (8)
  - Productive cough [Recovered/Resolved]
  - Febrile neutropenia [Unknown]
  - Anaemia [Unknown]
  - Back pain [Unknown]
  - Pain [Unknown]
  - Lung infection [Recovered/Resolved]
  - Neutrophil count decreased [Unknown]
  - Skin infection [Unknown]

NARRATIVE: CASE EVENT DATE: 20111110
